FAERS Safety Report 7278198-X (Version None)
Quarter: 2011Q1

REPORT INFORMATION
  Report Type: 
  Country: None (occurrence: None)
  Receive Date: 20110207
  Receipt Date: 20110131
  Transmission Date: 20110831
  Serious: Yes (Hospitalization)
  Sender: FDA-Public Use
  Company Number: B0697830A

PATIENT
  Sex: Female
  Weight: 54 kg

DRUGS (7)
  1. DIOVAN [Concomitant]
     Indication: HYPERTENSION
     Route: 048
  2. BARACLUDE [Concomitant]
     Indication: HEPATITIS B
     Route: 048
  3. TYKERB [Suspect]
     Indication: BREAST CANCER
     Dosage: 1250MG PER DAY
     Route: 048
     Dates: start: 20100602, end: 20101015
  4. XELODA [Suspect]
     Dosage: 2400MG PER DAY
     Route: 048
     Dates: start: 20100602, end: 20100608
  5. ZOMETA [Suspect]
     Indication: METASTASES TO BONE
     Route: 042
     Dates: start: 20080401, end: 20101124
  6. XELODA [Suspect]
     Dosage: 1200MG PER DAY
     Route: 048
     Dates: start: 20100609, end: 20101015
  7. NORVASC [Concomitant]
     Indication: HYPERTENSION
     Route: 048

REACTIONS (1)
  - ERYSIPELAS [None]
